FAERS Safety Report 8654379 (Version 3)
Quarter: 2013Q1

REPORT INFORMATION
  Report Type: Spontaneous
  Country: US (occurrence: None)
  Receive Date: 20120615
  Receipt Date: 20130129
  Transmission Date: 20140127
  Serious: Yes (Hospitalization, Other)
  Sender: FDA-Public Use
  Company Number: ACO_30587_2012

PATIENT
  Age: 52 Year
  Sex: Male
  Weight: 83.9 kg

DRUGS (7)
  1. AMPYRA [Suspect]
     Dosage: Q 12 HRS
     Route: 048
     Dates: start: 20120504, end: 20120508
  2. ANTIHYPERTENSIVES [Suspect]
     Indication: BLOOD PRESSURE
  3. REBIF (INTERFERON BETA-1A) [Suspect]
     Route: 058
     Dates: start: 20110319
  4. OXYBUTYNIN (OXYBUTYNIN) [Concomitant]
  5. PROPRANOLOL [Concomitant]
  6. PANTOPRAZOLE (PANTOPRAZOLE) [Concomitant]
  7. LISINOPRIL/HCTZ (HYDROCHLOROTHIAZIDE, LISINOPRIL) [Concomitant]

REACTIONS (5)
  - DRUG HYPERSENSITIVITY [None]
  - Injection site irritation [None]
  - Injection site pruritus [None]
  - Injection site erythema [None]
  - Injection site mass [None]
